FAERS Safety Report 10470242 (Version 1)
Quarter: 2014Q3

REPORT INFORMATION
  Report Type: Spontaneous
  Country: US (occurrence: US)
  Receive Date: 20140923
  Receipt Date: 20140923
  Transmission Date: 20150326
  Serious: Yes (Other)
  Sender: FDA-Public Use
  Company Number: US-TEVA-510806USA

PATIENT
  Age: 27 Year
  Sex: Female
  Weight: 61.29 kg

DRUGS (1)
  1. PLAN B ONE-STEP [Suspect]
     Active Substance: LEVONORGESTREL
     Indication: POST COITAL CONTRACEPTION
     Dosage: 1.5 MILLIGRAM DAILY;
     Route: 048
     Dates: start: 20130522, end: 20130522

REACTIONS (4)
  - Live birth [Recovered/Resolved]
  - Metrorrhagia [Recovered/Resolved]
  - Pregnancy [Recovered/Resolved]
  - Subchorionic haematoma [Recovered/Resolved]

NARRATIVE: CASE EVENT DATE: 20130622
